FAERS Safety Report 9200742 (Version 1)
Quarter: 2013Q1

REPORT INFORMATION
  Report Type: Spontaneous
  Country: US (occurrence: None)
  Receive Date: 20130328
  Receipt Date: 20130328
  Transmission Date: 20140127
  Serious: Yes (Other)
  Sender: FDA-Public Use
  Company Number: None

PATIENT
  Age: 58 Year
  Sex: Female
  Weight: 53.07 kg

DRUGS (1)
  1. AMOXICILLIN CLAVULANATE [Suspect]
     Indication: STAPHYLOCOCCAL INFECTION
     Dosage: 1 DOSE EVERY 12 HRS, PO
     Route: 048
     Dates: start: 20130325, end: 20130326

REACTIONS (1)
  - Hypersensitivity [None]
